FAERS Safety Report 11011143 (Version 2)
Quarter: 2015Q2

REPORT INFORMATION
  Report Type: Spontaneous
  Country: US (occurrence: US)
  Receive Date: 20150410
  Receipt Date: 20150529
  Transmission Date: 20150821
  Serious: Yes (Other)
  Sender: FDA-Public Use
  Company Number: US-ASTRAZENECA-2014SE04812

PATIENT
  Age: 23103 Day
  Sex: Male
  Weight: 88.9 kg

DRUGS (7)
  1. METFORMIN HCL [Suspect]
     Active Substance: METFORMIN HYDROCHLORIDE
     Dosage: 500 MG, UNK, NON AZ DRUG
     Route: 065
  2. AMPICILLIN [Suspect]
     Active Substance: AMPICILLIN
     Indication: ABSCESS
     Dosage: 500 MG, Q8H
     Route: 065
  3. GLYBURIDE. [Suspect]
     Active Substance: GLYBURIDE
     Dosage: 1DF:2.5, UNKNOWN
     Route: 065
  4. CRESTOR [Concomitant]
     Active Substance: ROSUVASTATIN CALCIUM
  5. BYDUREON [Suspect]
     Active Substance: EXENATIDE
     Indication: TYPE 2 DIABETES MELLITUS
     Route: 058
     Dates: start: 201309
  6. MEGA MAN MULTI- VITAMIN [Concomitant]
     Dosage: DAILY
  7. FARXIGA [Suspect]
     Active Substance: DAPAGLIFLOZIN PROPANEDIOL
     Indication: TYPE 2 DIABETES MELLITUS
     Route: 048

REACTIONS (3)
  - Tooth abscess [Recovered/Resolved]
  - Blood glucose increased [Unknown]
  - Pain [Unknown]

NARRATIVE: CASE EVENT DATE: 20140227
